FAERS Safety Report 16023649 (Version 3)
Quarter: 2019Q3

REPORT INFORMATION
  Report Type: Spontaneous
  Country: PL (occurrence: PL)
  Receive Date: 20190301
  Receipt Date: 20190806
  Transmission Date: 20191004
  Serious: Yes (Other)
  Sender: FDA-Public Use
  Company Number: PL-MYLANLABS-2019M1016858

PATIENT
  Age: 7 Year
  Sex: Female

DRUGS (8)
  1. CASPOFUNGIN [Concomitant]
     Active Substance: CASPOFUNGIN
     Indication: PRODUCT USED FOR UNKNOWN INDICATION
     Dosage: UNK
  2. VANCOMYCIN [Concomitant]
     Active Substance: VANCOMYCIN
     Indication: EVIDENCE BASED TREATMENT
     Dosage: UNK
  3. ISAVUCONAZOLE [Concomitant]
     Active Substance: ISAVUCONAZOLE
     Dosage: UNK
  4. CEFEPIME [Concomitant]
     Active Substance: CEFEPIME HYDROCHLORIDE
     Indication: EVIDENCE BASED TREATMENT
     Dosage: UNK
  5. VORICONAZOLE. [Suspect]
     Active Substance: VORICONAZOLE
     Indication: ASPERGILLUS INFECTION
  6. AMPHOTERICINUM B [Concomitant]
     Active Substance: AMPHOTERICIN B
     Dosage: 5 MILLIGRAM/KILOGRAM, QD
  7. VORICONAZOLE. [Suspect]
     Active Substance: VORICONAZOLE
     Indication: FUNGAL INFECTION
     Dosage: UNK
  8. POSACONAZOL [Concomitant]
     Active Substance: POSACONAZOLE
     Dosage: UNK

REACTIONS (10)
  - Infection [Recovered/Resolved]
  - Therapy non-responder [Unknown]
  - Pyrexia [Recovered/Resolved]
  - Fungal infection [Unknown]
  - General physical condition decreased [Recovered/Resolved]
  - Lung infiltration [Recovered/Resolved]
  - Lung infection [Unknown]
  - Drug ineffective [Unknown]
  - Mucormycosis [Recovered/Resolved]
  - General physical health deterioration [Unknown]
